FAERS Safety Report 16402314 (Version 2)
Quarter: 2019Q2

REPORT INFORMATION
  Report Type: Report from Study
  Country: US (occurrence: US)
  Receive Date: 20190607
  Receipt Date: 20190607
  Transmission Date: 20190711
  Serious: Yes (Death, Hospitalization, Other)
  Sender: FDA-Public Use
  Company Number: PHEH2019US023792

PATIENT
  Age: 80 Year
  Sex: Male
  Weight: 72.56 kg

DRUGS (1)
  1. TREPROSTINIL. [Suspect]
     Active Substance: TREPROSTINIL
     Indication: PULMONARY ARTERIAL HYPERTENSION
     Dosage: 21 NG/KG/MIN
     Route: 042
     Dates: start: 20190501

REACTIONS (3)
  - Acute respiratory failure [Unknown]
  - Death [Fatal]
  - Hypoxia [Unknown]

NARRATIVE: CASE EVENT DATE: 20190601
